FAERS Safety Report 7436620-X (Version None)
Quarter: 2011Q1

REPORT INFORMATION
  Report Type: 
  Country: None (occurrence: None)
  Receive Date: 20110302
  Receipt Date: 20101115
  Transmission Date: 20110831
  Serious: No
  Sender: FDA-Public Use
  Company Number: 022067

PATIENT
  Sex: Female
  Weight: 99.7 kg

DRUGS (4)
  1. OXAPROZIN [Concomitant]
  2. CIMZIA [Suspect]
     Indication: RHEUMATOID ARTHRITIS
     Dosage: 400 MG 1X/ MONTH SUBCUTANEOUS
     Route: 058
     Dates: start: 20100601
  3. JANUVIA [Concomitant]
  4. MULTI-VITAMINS [Concomitant]

REACTIONS (4)
  - GAIT DISTURBANCE [None]
  - FOOT FRACTURE [None]
  - POLLAKIURIA [None]
  - DRUG INEFFECTIVE [None]
